FAERS Safety Report 18095620 (Version 4)
Quarter: 2021Q3

REPORT INFORMATION
  Report Type: Report from Study
  Country: US (occurrence: US)
  Receive Date: 20200730
  Receipt Date: 20210910
  Transmission Date: 20211014
  Serious: Yes (Life-Threatening, Hospitalization, Other)
  Sender: FDA-Public Use
  Company Number: US-MYLANLABS-2020M1068584

PATIENT
  Age: 40 Year
  Sex: Female
  Weight: 83.4 kg

DRUGS (6)
  1. CLOZAPINE. [Suspect]
     Active Substance: CLOZAPINE
     Indication: PSYCHOTIC DISORDER
     Dosage: 350 MILLIGRAM
     Route: 048
  2. HALDOL [Concomitant]
     Active Substance: HALOPERIDOL
     Dosage: 5 MILLIGRAM, QHS
  3. VALIUM [Concomitant]
     Active Substance: DIAZEPAM
     Dosage: 2 MILLIGRAM
  4. LUNESTA [Concomitant]
     Active Substance: ESZOPICLONE
     Dosage: 3 MG QHS (2?3 QHS)
  5. LUVOX [Concomitant]
     Active Substance: FLUVOXAMINE MALEATE
     Dosage: 100 MILLIGRAM
  6. LITHIUM CARBONATE. [Concomitant]
     Active Substance: LITHIUM CARBONATE
     Dosage: 1200 MILLIGRAM, QHS

REACTIONS (4)
  - Dysarthria [Unknown]
  - Drooling [Unknown]
  - Neutropenia [Recovered/Resolved]
  - Loss of personal independence in daily activities [Unknown]

NARRATIVE: CASE EVENT DATE: 20210721
